FAERS Safety Report 5248697-0 (Version None)
Quarter: 2007Q1

REPORT INFORMATION
  Report Type: 
  Country: None (occurrence: None)
  Receive Date: 20070222
  Receipt Date: 20070212
  Transmission Date: 20070707
  Serious: Yes (Hospitalization)
  Sender: FDA-Public Use
  Company Number: 2007SS000009

PATIENT
  Age: 51 Year
  Sex: Female
  Weight: 68.4932 kg

DRUGS (14)
  1. MYOBLOC [Suspect]
     Indication: TORTICOLLIS
     Dosage: 25000 UNITS; IM
     Route: 030
     Dates: start: 20060101, end: 20060101
  2. DANTRIUM [Concomitant]
  3. KEPPRA [Concomitant]
  4. DIAZEPAM [Concomitant]
  5. BONIVA [Concomitant]
  6. ALBUTEROL/00139501/ [Concomitant]
  7. HYDROMORPHONE HCL [Concomitant]
  8. ACTIQ [Concomitant]
  9. CYMBALTA [Concomitant]
  10. TOPROL-XL [Concomitant]
  11. ZESTRIL [Concomitant]
  12. PROTONIX /01263201/ [Concomitant]
  13. VITAMIN CAP [Concomitant]
  14. CALCIUM WITH VITAMIN D [Concomitant]

REACTIONS (2)
  - CARDIOMYOPATHY [None]
  - FLUID RETENTION [None]
